FAERS Safety Report 8247922-1 (Version None)
Quarter: 2012Q1

REPORT INFORMATION
  Report Type: 
  Country: None (occurrence: None)
  Receive Date: 20120330
  Receipt Date: 20120323
  Transmission Date: 20120608
  Serious: Yes (Other)
  Sender: FDA-Public Use
  Company Number: US-TEVA-329830USA

PATIENT
  Sex: Female

DRUGS (1)
  1. QVAR 40 [Suspect]
     Dosage: 2 PUFFS TWICE A DAY

REACTIONS (1)
  - PULMONARY HAEMORRHAGE [None]
